FAERS Safety Report 6655652-2 (Version None)
Quarter: 2010Q1

REPORT INFORMATION
  Report Type: 
  Country: None (occurrence: None)
  Receive Date: 20100329
  Receipt Date: 20100318
  Transmission Date: 20100710
  Serious: Yes (Disabling, Other)
  Sender: FDA-Public Use
  Company Number: US-PFIZER INC-2009185839

PATIENT
  Sex: Male
  Weight: 69.841 kg

DRUGS (4)
  1. XANAX [Suspect]
     Indication: ANXIETY
     Dosage: 4 MG, 1X/DAY
  2. XANAX [Suspect]
     Indication: SLEEP DISORDER
  3. LIPITOR [Suspect]
     Dosage: UNK
  4. LUNESTA [Suspect]

REACTIONS (21)
  - ACTIVITIES OF DAILY LIVING IMPAIRED [None]
  - ANXIETY [None]
  - BLOOD BILIRUBIN INCREASED [None]
  - BLOOD CHOLESTEROL INCREASED [None]
  - BLOOD CREATININE INCREASED [None]
  - DRUG DEPENDENCE [None]
  - DRUG DETOXIFICATION [None]
  - DRUG EFFECT DECREASED [None]
  - DRY MOUTH [None]
  - FEELING ABNORMAL [None]
  - GENERAL PHYSICAL CONDITION ABNORMAL [None]
  - GILBERT'S SYNDROME [None]
  - GLOMERULAR FILTRATION RATE DECREASED [None]
  - GLOMERULAR FILTRATION RATE INCREASED [None]
  - IMPAIRED WORK ABILITY [None]
  - INSOMNIA [None]
  - MENTAL IMPAIRMENT [None]
  - MUSCLE SPASMS [None]
  - PANCREATIC ENLARGEMENT [None]
  - RENAL DISORDER [None]
  - WEIGHT DECREASED [None]
